FAERS Safety Report 8416958-X (Version None)
Quarter: 2012Q2

REPORT INFORMATION
  Report Type: 
  Country: None (occurrence: None)
  Receive Date: 20120606
  Receipt Date: 20120531
  Transmission Date: 20120825
  Serious: Yes (Hospitalization, Other)
  Sender: FDA-Public Use
  Company Number: US-PFIZER INC-2012131855

PATIENT
  Sex: Female

DRUGS (3)
  1. EFFEXOR XR [Suspect]
     Dosage: 75 MG, 2X/DAY
     Route: 048
  2. EFFEXOR XR [Suspect]
     Dosage: UNK, DAILY
     Route: 048
  3. EFFEXOR XR [Suspect]
     Dosage: UNK
     Route: 048

REACTIONS (2)
  - CARDIAC DISORDER [None]
  - BLOOD POTASSIUM INCREASED [None]
